FAERS Safety Report 7206614-8 (Version None)
Quarter: 2011Q1

REPORT INFORMATION
  Report Type: 
  Country: None (occurrence: None)
  Receive Date: 20110103
  Receipt Date: 20101229
  Transmission Date: 20110831
  Serious: Yes (Other)
  Sender: FDA-Public Use
  Company Number: PHHY2010US89403

PATIENT
  Sex: Male

DRUGS (2)
  1. SPIRIVA [Concomitant]
  2. FORADIL [Suspect]

REACTIONS (2)
  - ACCIDENT AT WORK [None]
  - HIP FRACTURE [None]
